FAERS Safety Report 11812733 (Version 1)
Quarter: 2015Q4

REPORT INFORMATION
  Report Type: Spontaneous
  Country: CN (occurrence: CN)
  Receive Date: 20151209
  Receipt Date: 20151209
  Transmission Date: 20160305
  Serious: Yes (Hospitalization)
  Sender: FDA-Public Use
  Company Number: PHHY2015CN159551

PATIENT
  Age: 7 Year
  Sex: Female

DRUGS (3)
  1. CICLOSPORIN [Suspect]
     Active Substance: CYCLOSPORINE
     Indication: APLASTIC ANAEMIA
     Route: 065
  2. ANTITHYMOCYTE IMMUNOGLOBULIN [Suspect]
     Active Substance: THYMOCYTE IMMUNE GLOBULIN NOS
     Indication: APLASTIC ANAEMIA
     Route: 065
  3. TESTOSTERONE UNDECANOATE [Suspect]
     Active Substance: TESTOSTERONE UNDECANOATE
     Indication: APLASTIC ANAEMIA
     Route: 065

REACTIONS (7)
  - Haemorrhage subcutaneous [Recovered/Resolved]
  - Herpes virus infection [Recovered/Resolved]
  - Varicella [Recovered/Resolved]
  - Pyrexia [Recovered/Resolved]
  - Pruritus [Recovered/Resolved]
  - Haemorrhage [Recovered/Resolved]
  - Product use issue [Unknown]

NARRATIVE: CASE EVENT DATE: 20131112
